FAERS Safety Report 11080897 (Version 1)
Quarter: 2015Q2

REPORT INFORMATION
  Report Type: Spontaneous
  Country: US (occurrence: None)
  Receive Date: 20150430
  Receipt Date: 20150430
  Transmission Date: 20150821
  Serious: Yes (Other)
  Sender: FDA-Public Use
  Company Number: None

PATIENT
  Age: 54 Year
  Sex: Female
  Weight: 72.58 kg

DRUGS (10)
  1. PROAIR HFA [Concomitant]
     Active Substance: ALBUTEROL SULFATE
  2. HYDROCODONE/ACETAMINOPHEN [Suspect]
     Active Substance: ACETAMINOPHEN\HYDROCODONE
     Indication: INTERVERTEBRAL DISC DEGENERATION
     Dosage: 7.5-325?1
     Dates: start: 20150401, end: 20150429
  3. LYSINOPRIL [Concomitant]
  4. VITAMIN C [Concomitant]
     Active Substance: ASCORBIC ACID
  5. HYDROCODONE/ACETAMINOPHEN [Suspect]
     Active Substance: ACETAMINOPHEN\HYDROCODONE
     Indication: CERVICAL SPINAL STENOSIS
     Dosage: 7.5-325?1
     Dates: start: 20150401, end: 20150429
  6. LEVOTHYROXINE [Concomitant]
     Active Substance: LEVOTHYROXINE
  7. MULTI VITAMIN [Concomitant]
     Active Substance: VITAMINS
  8. HYDROCODONE/ACETAMINOPHEN [Suspect]
     Active Substance: ACETAMINOPHEN\HYDROCODONE
     Indication: CARPAL TUNNEL SYNDROME
     Dosage: 7.5-325?1
     Dates: start: 20150401, end: 20150429
  9. ALBUTEROL. [Concomitant]
     Active Substance: ALBUTEROL
  10. OMEGA 3 [Concomitant]
     Active Substance: OMEGA-3 FATTY ACIDS

REACTIONS (13)
  - Product substitution issue [None]
  - Impaired driving ability [None]
  - Dizziness [None]
  - Muscular weakness [None]
  - Nausea [None]
  - Inadequate analgesia [None]
  - Activities of daily living impaired [None]
  - Abdominal discomfort [None]
  - Impaired work ability [None]
  - Headache [None]
  - Malaise [None]
  - Drug withdrawal syndrome [None]
  - Abdominal pain upper [None]

NARRATIVE: CASE EVENT DATE: 20150429
